FAERS Safety Report 4609208-3 (Version None)
Quarter: 2005Q1

REPORT INFORMATION
  Report Type: 
  Country: None (occurrence: None)
  Receive Date: 20050311
  Receipt Date: 20050223
  Transmission Date: 20050727
  Serious: Yes (Death)
  Sender: FDA-Public Use
  Company Number: B0373146A

PATIENT
  Age: 47 Year
  Sex: Male

DRUGS (3)
  1. RETROVIR [Suspect]
     Indication: HIV INFECTION
  2. EPIVIR [Suspect]
     Indication: HIV INFECTION
  3. EFAVIRENZ (FORMULATION UNKNOWN) (EFAVIRENZ) [Suspect]
     Indication: HIV INFECTION

REACTIONS (23)
  - ACUTE RESPIRATORY DISTRESS SYNDROME [None]
  - ANAEMIA [None]
  - BLOOD PRESSURE DIASTOLIC DECREASED [None]
  - CYTOMEGALOVIRUS INFECTION [None]
  - DISSEMINATED INTRAVASCULAR COAGULATION [None]
  - HEART RATE INCREASED [None]
  - HYPONATRAEMIA [None]
  - HYPOXIA [None]
  - IMMUNE RECONSTITUTION SYNDROME [None]
  - INFLAMMATION [None]
  - KAPOSI'S SARCOMA [None]
  - LYMPHADENOPATHY [None]
  - MULTI-ORGAN FAILURE [None]
  - MYCOBACTERIUM AVIUM COMPLEX INFECTION [None]
  - OEDEMA PERIPHERAL [None]
  - PLEURAL EFFUSION [None]
  - PNEUMOCYSTIS JIROVECI INFECTION [None]
  - RECURRENT CANCER [None]
  - RENAL FAILURE ACUTE [None]
  - RESPIRATORY RATE INCREASED [None]
  - SEBORRHOEIC DERMATITIS [None]
  - SPLENOMEGALY [None]
  - THROMBOCYTOPENIA [None]
